FAERS Safety Report 11492757 (Version 1)
Quarter: 2015Q3

REPORT INFORMATION
  Report Type: Report from Study
  Country: AR (occurrence: AR)
  Receive Date: 20150911
  Receipt Date: 20150911
  Transmission Date: 20151125
  Serious: Yes (Death, Life-Threatening, Hospitalization, Other)
  Sender: FDA-Public Use
  Company Number: AR-BRISTOL-MYERS SQUIBB COMPANY-BMS-2015-033630

PATIENT
  Age: 60 Year
  Sex: Female

DRUGS (5)
  1. IXABEPILONE [Suspect]
     Active Substance: IXABEPILONE
     Dosage: 45 MG, EVERY 21 DAYS (SECOND DOSE ON 04-JUN-2015)
     Route: 042
     Dates: start: 20150730
  2. BEVACIZUMAB [Concomitant]
     Active Substance: BEVACIZUMAB
     Indication: PRODUCT USED FOR UNKNOWN INDICATION
     Route: 065
  3. IXABEPILONE [Suspect]
     Active Substance: IXABEPILONE
     Dosage: 45 MG, EVERY 21 DAYS (SECOND DOSE ON 04-JUN-2015)
     Route: 042
     Dates: start: 20150604
  4. IXABEPILONE [Suspect]
     Active Substance: IXABEPILONE
     Indication: PRODUCT USED FOR UNKNOWN INDICATION
     Dosage: 45 MG, EVERY 21 DAYS (SECOND DOSE ON 04-JUN-2015)
     Route: 042
     Dates: start: 20150515
  5. IXABEPILONE [Suspect]
     Active Substance: IXABEPILONE
     Dosage: 45 MG, EVERY 21 DAYS (SECOND DOSE ON 04-JUN-2015)
     Route: 042
     Dates: start: 20150702

REACTIONS (11)
  - Fatigue [Recovering/Resolving]
  - Dizziness [Unknown]
  - Myalgia [Recovering/Resolving]
  - Haematocrit decreased [Unknown]
  - Transfusion [Unknown]
  - Death [Fatal]
  - Anaemia [Not Recovered/Not Resolved]
  - Vomiting [Unknown]
  - Hypertension [Recovering/Resolving]
  - Bone pain [Recovering/Resolving]
  - Headache [Unknown]

NARRATIVE: CASE EVENT DATE: 20150520
